FAERS Safety Report 26028888 (Version 1)
Quarter: 2025Q4

REPORT INFORMATION
  Report Type: Spontaneous
  Country: US (occurrence: US)
  Receive Date: 20251112
  Receipt Date: 20251112
  Transmission Date: 20260118
  Serious: Yes (Hospitalization, Other)
  Sender: APOTEX
  Company Number: US-APOTEX-2025AP031826

PATIENT
  Sex: Male

DRUGS (2)
  1. ALPRAZOLAM [Suspect]
     Active Substance: ALPRAZOLAM
     Indication: Product used for unknown indication
     Dosage: APPROXIMATELY 18 MILLIGRAM, QD
     Route: 065
  2. FENTANYL [Concomitant]
     Active Substance: FENTANYL
     Indication: Product used for unknown indication
     Dosage: 12-14 BAGS QD
     Route: 051

REACTIONS (5)
  - Drug use disorder [Unknown]
  - Tremor [Unknown]
  - Restlessness [Unknown]
  - Anxiety [Unknown]
  - Drug withdrawal convulsions [Unknown]
